FAERS Safety Report 25542885 (Version 2)
Quarter: 2025Q3

REPORT INFORMATION
  Report Type: Spontaneous
  Country: US (occurrence: US)
  Receive Date: 20250711
  Receipt Date: 20250724
  Transmission Date: 20251021
  Serious: No
  Sender: LEO PHARM
  Company Number: US-LEO Pharma-381233

PATIENT
  Age: 81 Year
  Sex: Female

DRUGS (1)
  1. ADBRY [Suspect]
     Active Substance: TRALOKINUMAB-LDRM
     Indication: Dermatitis atopic
     Dosage: DOSE AND FREQUENCY-INJECT 2 PENS UNDER THE SKIN ON DAY 1,
     Dates: start: 20250627

REACTIONS (4)
  - Movement disorder [Unknown]
  - Rash [Unknown]
  - Paraesthesia [Unknown]
  - Pruritus [Unknown]
